APPROVED DRUG PRODUCT: LACTATED RINGER'S IN PLASTIC CONTAINER
Active Ingredient: CALCIUM CHLORIDE; POTASSIUM CHLORIDE; SODIUM CHLORIDE; SODIUM LACTATE
Strength: 20MG/100ML;30MG/100ML;600MG/100ML;310MG/100ML
Dosage Form/Route: INJECTABLE;INJECTION
Application: N019632 | Product #001 | TE Code: AP
Applicant: B BRAUN MEDICAL INC
Approved: Feb 29, 1988 | RLD: No | RS: No | Type: RX